FAERS Safety Report 25614823 (Version 1)
Quarter: 2025Q3

REPORT INFORMATION
  Report Type: Report from Study
  Country: EU (occurrence: EU)
  Receive Date: 20250729
  Receipt Date: 20250729
  Transmission Date: 20251020
  Serious: Yes (Other)
  Sender: CELLTRION
  Company Number: EU-ABBVIE-6212721

PATIENT

DRUGS (1)
  1. ADALIMUMAB [Suspect]
     Active Substance: ADALIMUMAB
     Indication: Rheumatoid arthritis
     Route: 058
     Dates: start: 201904

REACTIONS (3)
  - Polyarthritis [Unknown]
  - General physical health deterioration [Unknown]
  - Viral infection [Unknown]

NARRATIVE: CASE EVENT DATE: 20240401
